FAERS Safety Report 14197588 (Version 1)
Quarter: 2017Q4

REPORT INFORMATION
  Report Type: Report from Study
  Country: CA (occurrence: CA)
  Receive Date: 20171116
  Receipt Date: 20171116
  Transmission Date: 20180321
  Serious: Yes (Other)
  Sender: FDA-Public Use
  Company Number: CA-GILEAD-2017-0303930

PATIENT
  Age: 69 Year
  Sex: Female

DRUGS (1)
  1. SOFOSBUVIR W/VELPATASVIR [Suspect]
     Active Substance: SOFOSBUVIR\VELPATASVIR
     Indication: CHRONIC HEPATITIS C
     Dosage: 1 DF, UNK
     Route: 048
     Dates: start: 20171019

REACTIONS (14)
  - Migraine [Unknown]
  - Liver disorder [Unknown]
  - Fear [Unknown]
  - Crying [Unknown]
  - Frustration tolerance decreased [Unknown]
  - Fatigue [Unknown]
  - Product communication issue [Recovered/Resolved]
  - Emotional disorder [Unknown]
  - Walking aid user [Not Recovered/Not Resolved]
  - Malaise [Unknown]
  - Circumstance or information capable of leading to medication error [Unknown]
  - Glucose tolerance impaired [Unknown]
  - Hepatic cirrhosis [Unknown]
  - Blood glucose abnormal [Unknown]

NARRATIVE: CASE EVENT DATE: 2017
